FAERS Safety Report 25187227 (Version 1)
Quarter: 2025Q2

REPORT INFORMATION
  Report Type: Other
  Country: US (occurrence: US)
  Receive Date: 20250411
  Receipt Date: 20250411
  Transmission Date: 20250717
  Serious: Yes (Death, Other)
  Sender: ALVOGEN
  Company Number: US-ALVOGEN-2025096830

PATIENT
  Age: 62 Year
  Sex: Female

DRUGS (11)
  1. TRAZODONE [Suspect]
     Active Substance: TRAZODONE HYDROCHLORIDE
     Indication: Suicide attempt
     Route: 048
  2. ACETAMINOPHEN\OXYCODONE HYDROCHLORIDE [Suspect]
     Active Substance: ACETAMINOPHEN\OXYCODONE HYDROCHLORIDE
     Indication: Suicide attempt
     Route: 048
  3. CARBAMAZEPINE [Suspect]
     Active Substance: CARBAMAZEPINE
     Indication: Suicide attempt
     Route: 048
  4. DULOXETINE [Suspect]
     Active Substance: DULOXETINE
     Indication: Suicide attempt
     Route: 048
  5. ESCITALOPRAM [Suspect]
     Active Substance: ESCITALOPRAM OXALATE
     Indication: Suicide attempt
     Route: 048
  6. DOXYCYCLINE [Suspect]
     Active Substance: DOXYCYCLINE
     Indication: Suicide attempt
     Route: 048
  7. SULFAMETHOXAZOLE\TRIMETHOPRIM [Suspect]
     Active Substance: SULFAMETHOXAZOLE\TRIMETHOPRIM
     Indication: Suicide attempt
     Route: 048
  8. AMOXICILLIN\CLAVULANIC ACID [Suspect]
     Active Substance: AMOXICILLIN\CLAVULANIC ACID
     Indication: Suicide attempt
     Route: 048
  9. CHLORDIAZEPOXIDE [Suspect]
     Active Substance: CHLORDIAZEPOXIDE
     Indication: Suicide attempt
     Route: 048
  10. PREDNISONE [Suspect]
     Active Substance: PREDNISONE
     Indication: Suicide attempt
     Route: 048
  11. PANTOPRAZOLE [Suspect]
     Active Substance: PANTOPRAZOLE
     Indication: Suicide attempt
     Route: 048

REACTIONS (3)
  - Completed suicide [Fatal]
  - Respiratory arrest [Unknown]
  - Cardiac arrest [Unknown]
